FAERS Safety Report 7377951-1 (Version None)
Quarter: 2011Q1

REPORT INFORMATION
  Report Type: 
  Country: None (occurrence: None)
  Receive Date: 20110328
  Receipt Date: 20110321
  Transmission Date: 20110831
  Serious: Yes (Hospitalization)
  Sender: FDA-Public Use
  Company Number: FR-PFIZER INC-2011061337

PATIENT
  Age: 96 Year
  Sex: Female

DRUGS (4)
  1. CELEBREX [Suspect]
     Dosage: 200 MG, 1X/DAY
     Dates: start: 20110101
  2. SERC [Concomitant]
  3. DAFALGAN [Concomitant]
  4. LODOZ [Concomitant]

REACTIONS (2)
  - OEDEMA PERIPHERAL [None]
  - DERMATITIS BULLOUS [None]
